FAERS Safety Report 8311770-4 (Version None)
Quarter: 2012Q2

REPORT INFORMATION
  Report Type: 
  Country: None (occurrence: None)
  Receive Date: 20120425
  Receipt Date: 20120419
  Transmission Date: 20120825
  Serious: Yes (Death, Other)
  Sender: FDA-Public Use
  Company Number: US-BAYER-201030068NA

PATIENT
  Age: 72 Year
  Sex: Male
  Weight: 109 kg

DRUGS (10)
  1. NITROGLYCERIN [Concomitant]
     Dosage: UNK
     Dates: start: 20050223, end: 20050223
  2. SOLU-MEDROL [Concomitant]
     Dosage: UNK
     Dates: start: 20050223, end: 20050223
  3. LASIX [Concomitant]
     Dosage: 20 MG, UNK
     Dates: start: 20050223, end: 20050223
  4. INSULIN [Concomitant]
     Dosage: UNK
     Dates: start: 20050223, end: 20050223
  5. PROTAMINE SULFATE [Concomitant]
     Dosage: UNK
     Dates: start: 20050223, end: 20050223
  6. VANCOMYCIN [Concomitant]
     Dosage: UNK
     Dates: start: 20050223, end: 20050223
  7. TRASYLOL [Suspect]
     Indication: CORONARY ARTERY BYPASS
     Dosage: BILLING FOR APROTININ, 10000KIU TIMES THREE
     Route: 042
     Dates: start: 20050223, end: 20050223
  8. VERSED [Concomitant]
     Dosage: UNK
     Dates: start: 20050223, end: 20050223
  9. HEPARIN [Concomitant]
     Dosage: UNK
     Dates: start: 20050223, end: 20050223
  10. CARDIOPLEGIA [Concomitant]

REACTIONS (12)
  - FEAR [None]
  - INJURY [None]
  - EMOTIONAL DISTRESS [None]
  - PAIN [None]
  - MULTI-ORGAN FAILURE [None]
  - DEATH [None]
  - RENAL INJURY [None]
  - DISABILITY [None]
  - ANXIETY [None]
  - DEPRESSION [None]
  - ANHEDONIA [None]
  - RENAL FAILURE [None]
